FAERS Safety Report 16170981 (Version 2)
Quarter: 2020Q4

REPORT INFORMATION
  Report Type: Spontaneous
  Country: AU (occurrence: AU)
  Receive Date: 20190408
  Receipt Date: 20201201
  Transmission Date: 20210113
  Serious: Yes (Life-Threatening)
  Sender: FDA-Public Use
  Company Number: PHHY2019AU079261

PATIENT
  Age: 51 Year
  Sex: Male

DRUGS (1)
  1. PAZOPANIB [Suspect]
     Active Substance: PAZOPANIB
     Indication: SYNOVIAL SARCOMA
     Dosage: UNK
     Route: 065

REACTIONS (1)
  - Hepatic failure [Recovered/Resolved]
